FAERS Safety Report 8904450 (Version 2)
Quarter: 2013Q4

REPORT INFORMATION
  Report Type: Not Available
  Country: GB (occurrence: GB)
  Receive Date: 20121113
  Receipt Date: 20131011
  Transmission Date: 20140711
  Serious: Yes (Death, Other)
  Sender: FDA-Public Use
  Company Number: GB-ASTELLAS-2012EU009796

PATIENT
  Age: 47 Year
  Sex: Female
  Weight: 79 kg

DRUGS (9)
  1. VESICARE [Suspect]
     Dosage: 5 MG, UID/QD
     Route: 048
  2. ACAMPROSATE [Concomitant]
     Dosage: 2 DF, TID
     Route: 065
  3. LEVOTHYROXINE SODIUM [Concomitant]
     Dosage: 150 UG, UID/QD
     Route: 065
  4. MIRTAZAPINE [Concomitant]
     Dosage: 30 MG, UNKNOWN/D
     Route: 065
  5. SALBUTAMOL [Concomitant]
     Dosage: UNK
     Route: 055
  6. SALMETEROL                         /00954702/ [Concomitant]
     Dosage: 2 DF, BID
     Route: 055
  7. FLUTICASONE [Concomitant]
     Dosage: 2 DF, BID
     Route: 055
  8. THIAMINE [Concomitant]
     Dosage: 100 MG, TID
     Route: 065
  9. VITAMIN B [Concomitant]
     Dosage: 2 DF, BID
     Route: 065

REACTIONS (10)
  - Sudden death [Fatal]
  - Liver injury [Fatal]
  - Liver function test abnormal [Not Recovered/Not Resolved]
  - Anxiety [Not Recovered/Not Resolved]
  - Cardiac arrest [Not Recovered/Not Resolved]
  - Arrhythmia [Not Recovered/Not Resolved]
  - Nausea [Not Recovered/Not Resolved]
  - Pain in extremity [Not Recovered/Not Resolved]
  - Pulseless electrical activity [Not Recovered/Not Resolved]
  - Dyspnoea [Not Recovered/Not Resolved]
